FAERS Safety Report 6825167-7 (Version None)
Quarter: 2010Q3

REPORT INFORMATION
  Report Type: 
  Country: None (occurrence: None)
  Receive Date: 20100708
  Receipt Date: 20061201
  Transmission Date: 20110219
  Serious: No
  Sender: FDA-Public Use
  Company Number: US-PFIZER INC-2006151957

PATIENT
  Sex: Female
  Weight: 95.25 kg

DRUGS (3)
  1. CHANTIX [Suspect]
     Indication: SMOKING CESSATION THERAPY
     Dates: start: 20061114
  2. INFLUENZA VACCINE [Suspect]
     Dates: start: 20061101
  3. ZESTORETIC [Concomitant]
     Indication: HYPERTENSION

REACTIONS (2)
  - DRUG INEFFECTIVE [None]
  - OROPHARYNGEAL PAIN [None]
